FAERS Safety Report 4552029-0 (Version None)
Quarter: 2005Q1

REPORT INFORMATION
  Report Type: 
  Country: None (occurrence: None)
  Receive Date: 20050113
  Receipt Date: 20041011
  Transmission Date: 20050727
  Serious: Yes (Hospitalization, Other)
  Sender: FDA-Public Use
  Company Number: DE-MERCK-0410DEU00349

PATIENT
  Age: 66 Year
  Sex: Male

DRUGS (6)
  1. VIOXX [Suspect]
     Route: 048
     Dates: start: 20020328, end: 20041005
  2. ATORVASTATIN CALCIUM [Concomitant]
     Route: 065
  3. BISOPROLOL FUMARATE AND HYDROCHLOROTHIAZIDE [Concomitant]
     Route: 048
  4. ALLOPURINOL [Concomitant]
     Route: 065
  5. MOLSIDOMINE [Concomitant]
     Route: 065
  6. ISOSORBIDE MONONITRATE [Concomitant]
     Route: 065

REACTIONS (2)
  - ARTHROPATHY [None]
  - DEEP VEIN THROMBOSIS [None]
